FAERS Safety Report 15478405 (Version 2)
Quarter: 2018Q4

REPORT INFORMATION
  Report Type: Report from Study
  Country: US (occurrence: US)
  Receive Date: 20181009
  Receipt Date: 20181227
  Transmission Date: 20190205
  Serious: Yes (Hospitalization, Other)
  Sender: FDA-Public Use
  Company Number: US-SA-2018SA276779

PATIENT
  Age: 32 Year
  Sex: Female

DRUGS (1)
  1. TERIFLUNOMIDE. [Suspect]
     Active Substance: TERIFLUNOMIDE
     Dosage: 14 MG, QD
     Route: 048
     Dates: start: 20180814, end: 2018

REACTIONS (8)
  - Persecutory delusion [Unknown]
  - Insomnia [Unknown]
  - Feeling abnormal [Unknown]
  - Hallucination [Unknown]
  - Schizophrenia [Unknown]
  - Chest pain [Unknown]
  - Hallucination, auditory [Unknown]
  - Dyspnoea [Unknown]

NARRATIVE: CASE EVENT DATE: 2018
